FAERS Safety Report 10159595 (Version 1)
Quarter: 2014Q2

REPORT INFORMATION
  Report Type: Spontaneous
  Country: FR (occurrence: None)
  Receive Date: 20140506
  Receipt Date: 20140506
  Transmission Date: 20141212
  Serious: Yes (Hospitalization)
  Sender: FDA-Public Use
  Company Number: AUR-APL-2014-05191

PATIENT
  Age: 58 Year
  Sex: Male
  Weight: 76 kg

DRUGS (9)
  1. BISOPROLOL (BISOPROLOL) [Suspect]
     Indication: PRODUCT USED FOR UNKNOWN INDICATION
     Dosage: (1.25 MG,1 D)
     Route: 048
     Dates: start: 20140221
  2. TAHOR (ATORVASTATIN CALCIUM) [Suspect]
     Indication: PRODUCT USED FOR UNKNOWN INDICATION
     Route: 048
     Dates: start: 20140221, end: 20140307
  3. BRILLIQUE (TICAGRELOR) [Concomitant]
  4. KARDEGIC (ACETYLSALICYLATE LYSINE) [Concomitant]
  5. INIPOMP (PANTOPRAZOLE SODIUM SESQUIHYDATE) [Concomitant]
  6. TRIATEC (PANADEINE CO) [Concomitant]
  7. INSPRA (MONTELUKASAT SODIUM) [Concomitant]
  8. LOVENOX (ENOXAPARIN SODIUM) [Concomitant]
  9. NOVOMIX (NOVOMIX) [Concomitant]

REACTIONS (3)
  - Interstitial lung disease [None]
  - Alveolar lung disease [None]
  - Pleural effusion [None]
